FAERS Safety Report 5955519-9 (Version None)
Quarter: 2008Q4

REPORT INFORMATION
  Report Type: 
  Country: None (occurrence: None)
  Receive Date: 20081113
  Receipt Date: 20081104
  Transmission Date: 20090506
  Serious: Yes (Other)
  Sender: FDA-Public Use
  Company Number: 2008AP002648

PATIENT
  Age: 72 Year
  Sex: Male

DRUGS (6)
  1. RISPERDAL [Suspect]
     Indication: DRUG USE FOR UNKNOWN INDICATION
     Dosage: 3 MG;PO;BID
     Route: 048
  2. CITALOPRAM HYDROBROMIDE [Concomitant]
  3. DIAZEPAM [Concomitant]
  4. LACTULOSE [Concomitant]
  5. MELOXICAM [Concomitant]
  6. OLANZAPINE [Concomitant]

REACTIONS (4)
  - ANAEMIA MACROCYTIC [None]
  - AUTONOMIC NERVOUS SYSTEM IMBALANCE [None]
  - ORTHOSTATIC HYPOTENSION [None]
  - WEIGHT DECREASED [None]
